FAERS Safety Report 13376776 (Version 1)
Quarter: 2017Q1

REPORT INFORMATION
  Report Type: Spontaneous
  Country: US (occurrence: US)
  Receive Date: 20170328
  Receipt Date: 20170328
  Transmission Date: 20170429
  Serious: No
  Sender: FDA-Public Use
  Company Number: US-AUROBINDO-AUR-APU-2016-11604

PATIENT
  Sex: Female
  Weight: 275 kg

DRUGS (1)
  1. FLUOXETINE [Suspect]
     Active Substance: FLUOXETINE HYDROCHLORIDE
     Indication: DEPRESSED MOOD
     Dosage: 1 CAPSULE PER DAY (IN THE MORNING)
     Route: 065
     Dates: start: 201608, end: 20160903

REACTIONS (1)
  - Drug ineffective [Unknown]
